FAERS Safety Report 14765709 (Version 1)
Quarter: 2018Q2

REPORT INFORMATION
  Report Type: Spontaneous
  Country: US (occurrence: US)
  Receive Date: 20180416
  Receipt Date: 20180416
  Transmission Date: 20180711
  Serious: Yes (Other)
  Sender: FDA-Public Use
  Company Number: US-BAYER-2018-071880

PATIENT
  Sex: Female

DRUGS (1)
  1. SKYLA [Suspect]
     Active Substance: LEVONORGESTREL
     Indication: CONTRACEPTION
     Dosage: 14 MCG/24HR, CONT
     Route: 015
     Dates: start: 20160804, end: 20180411

REACTIONS (4)
  - Drug ineffective [None]
  - Haemorrhage in pregnancy [None]
  - Abortion spontaneous [None]
  - Pregnancy with contraceptive device [Recovered/Resolved]

NARRATIVE: CASE EVENT DATE: 201804
